FAERS Safety Report 6816734-5 (Version None)
Quarter: 2010Q3

REPORT INFORMATION
  Report Type: 
  Country: None (occurrence: None)
  Receive Date: 20100706
  Receipt Date: 20100622
  Transmission Date: 20110219
  Serious: Yes (Other)
  Sender: FDA-Public Use
  Company Number: PHHY2010US40937

PATIENT
  Sex: Female
  Weight: 34.331 kg

DRUGS (10)
  1. FEMARA [Suspect]
     Indication: BREAST CANCER
     Dosage: 2.5 MG, DAILY
     Route: 048
     Dates: start: 20070801
  2. POTASSIUM CHLORIDE [Concomitant]
     Dosage: UNK
  3. MOBIC [Concomitant]
     Indication: PAIN
     Dosage: 7.5 MG, QD
     Dates: start: 19950101
  4. MULTI-VITAMINS [Concomitant]
     Dosage: UNK
  5. IBUPROFEN [Concomitant]
     Indication: PAIN
     Dosage: 400 MG, DAILY
     Route: 048
  6. EXCEDRIN (MIGRAINE) [Concomitant]
     Indication: PAIN
     Dosage: 250 MG, PRN
     Route: 048
  7. EXCEDRIN (MIGRAINE) [Concomitant]
     Dosage: 350 MG, PRN
     Route: 048
  8. EXCEDRIN (MIGRAINE) [Concomitant]
     Dosage: 450 MG, PRN
     Route: 048
  9. EXCEDRIN P.M. [Concomitant]
     Indication: INSOMNIA
     Dosage: 500 MG, QD
     Route: 048
  10. TIMOLOL MALEATE [Concomitant]
     Indication: GLAUCOMA
     Dosage: 1 DRP, BID
     Route: 047
     Dates: start: 20090101

REACTIONS (3)
  - EMOTIONAL DISORDER [None]
  - INSOMNIA [None]
  - WEIGHT INCREASED [None]
